FAERS Safety Report 18629720 (Version 1)
Quarter: 2020Q4

REPORT INFORMATION
  Report Type: Spontaneous
  Country: FR (occurrence: FR)
  Receive Date: 20201217
  Receipt Date: 20201217
  Transmission Date: 20210114
  Serious: Yes (Life-Threatening, Hospitalization)
  Sender: FDA-Public Use
  Company Number: FR-TEVA-2020-FR-1858586

PATIENT
  Age: 79 Year
  Sex: Female
  Weight: 90 kg

DRUGS (10)
  1. CHLORHYDRATE DE LERCANIDIPINE [Concomitant]
     Active Substance: LERCANIDIPINE HYDROCHLORIDE
  2. CELIPROLOL [Concomitant]
     Active Substance: CELIPROLOL
  3. ENALAPRIL (MALEATE D) [Suspect]
     Active Substance: ENALAPRIL MALEATE
     Indication: HYPERTENSION
     Dosage: UNIT DOSE : 20 MG
     Route: 048
     Dates: end: 20200703
  4. MODOPAR 125 (100 MG/25 MG), GELULE [Concomitant]
     Active Substance: BENSERAZIDE HYDROCHLORIDE\LEVODOPA
  5. FUROSEMIDE. [Concomitant]
     Active Substance: FUROSEMIDE
  6. LOSARTAN POTASSIQUE [Suspect]
     Active Substance: LOSARTAN POTASSIUM
     Indication: HYPERTENSION
     Dosage: UNIT DOSE : 100 MG
     Route: 048
     Dates: end: 20200703
  7. JANUMET [Suspect]
     Active Substance: METFORMIN HYDROCHLORIDE\SITAGLIPTIN PHOSPHATE
     Indication: INSULIN-REQUIRING TYPE 2 DIABETES MELLITUS
     Dosage: UNIT DOSE : 2 DOSAGE FORMS
     Route: 048
     Dates: end: 20200703
  8. HYDROCHLOROTHIAZIDE. [Concomitant]
     Active Substance: HYDROCHLOROTHIAZIDE
  9. TOUJEO [Concomitant]
     Active Substance: INSULIN GLARGINE
  10. RILMENIDINE [Concomitant]
     Active Substance: RILMENIDINE

REACTIONS (2)
  - Angioedema [Recovered/Resolved]
  - Respiratory distress [Recovered/Resolved]

NARRATIVE: CASE EVENT DATE: 20200703
